FAERS Safety Report 12892067 (Version 1)
Quarter: 2016Q4

REPORT INFORMATION
  Report Type: Spontaneous
  Country: GB (occurrence: GB)
  Receive Date: 20161028
  Receipt Date: 20161028
  Transmission Date: 20170207
  Serious: Yes (Other)
  Sender: FDA-Public Use
  Company Number: GB-SUN PHARMACEUTICAL INDUSTRIES LTD-2016RR-126475

PATIENT
  Sex: Female

DRUGS (2)
  1. PALIPERIDONE. [Suspect]
     Active Substance: PALIPERIDONE
     Indication: PRODUCT USED FOR UNKNOWN INDICATION
     Route: 065
  2. RISPERIDONE. [Suspect]
     Active Substance: RISPERIDONE
     Indication: PRODUCT USED FOR UNKNOWN INDICATION
     Dosage: DOSAGE FORM: UNSPECIFIED
     Route: 065

REACTIONS (13)
  - Adverse drug reaction [Unknown]
  - Skin odour abnormal [Unknown]
  - Sedation [Unknown]
  - Fatigue [Unknown]
  - Loss of consciousness [Unknown]
  - Exposure during pregnancy [Unknown]
  - Skin disorder [Unknown]
  - Vomiting [Unknown]
  - Drug administration error [Unknown]
  - Muscle atrophy [Unknown]
  - Scar [Unknown]
  - Sleep disorder [Unknown]
  - Weight increased [Unknown]
